FAERS Safety Report 17514419 (Version 1)
Quarter: 2020Q1

REPORT INFORMATION
  Report Type: Report from Study
  Country: None (occurrence: US)
  Receive Date: 20200309
  Receipt Date: 20200309
  Transmission Date: 20200409
  Serious: Yes (Other)
  Sender: FDA-Public Use
  Company Number: US-ABBVIE-18K-163-2356634-00

PATIENT
  Age: 61 Year
  Sex: Female

DRUGS (3)
  1. ENBREL [Suspect]
     Active Substance: ETANERCEPT
     Indication: PRODUCT USED FOR UNKNOWN INDICATION
     Route: 065
  2. HUMIRA [Suspect]
     Active Substance: ADALIMUMAB
     Indication: RHEUMATOID ARTHRITIS
     Route: 058
     Dates: start: 20180509
  3. HUMIRA [Suspect]
     Active Substance: ADALIMUMAB
     Route: 058

REACTIONS (11)
  - Weight decreased [Recovered/Resolved]
  - Dyspnoea [Not Recovered/Not Resolved]
  - Laboratory test abnormal [Unknown]
  - Abdominal pain [Recovered/Resolved]
  - Feeling abnormal [Unknown]
  - Gastrointestinal neoplasm [Recovered/Resolved]
  - Constipation [Unknown]
  - Abdominal distension [Unknown]
  - Anxiety [Recovering/Resolving]
  - Dolichocolon [Unknown]
  - Malaise [Unknown]

NARRATIVE: CASE EVENT DATE: 201805
